FAERS Safety Report 14646313 (Version 2)
Quarter: 2018Q1

REPORT INFORMATION
  Report Type: Spontaneous
  Country: FR (occurrence: FR)
  Receive Date: 20180316
  Receipt Date: 20180329
  Transmission Date: 20180509
  Serious: Yes (Other)
  Sender: FDA-Public Use
  Company Number: FR-MERCK KGAA-2043881

PATIENT
  Age: 67 Year
  Sex: Female

DRUGS (3)
  1. LEVOTHYROX NF [Suspect]
     Active Substance: LEVOTHYROXINE SODIUM
     Dates: start: 201706
  2. NOVOTHYROX [Suspect]
     Active Substance: LEVOTHYROXINE SODIUM
     Indication: THYROIDECTOMY
     Dates: start: 201706
  3. XELEVIA [Concomitant]
     Active Substance: SITAGLIPTIN PHOSPHATE

REACTIONS (16)
  - Loss of personal independence in daily activities [Recovering/Resolving]
  - Affective disorder [Not Recovered/Not Resolved]
  - Mood swings [Recovering/Resolving]
  - Peripheral nerve injury [Not Recovered/Not Resolved]
  - Arthralgia [Recovering/Resolving]
  - Muscle spasms [Recovering/Resolving]
  - Asthenia [Recovering/Resolving]
  - Myalgia [Recovering/Resolving]
  - Wrist deformity [Not Recovered/Not Resolved]
  - Glycosylated haemoglobin increased [None]
  - Blood glucose increased [None]
  - Red blood cell sedimentation rate increased [None]
  - Dyspnoea [Recovering/Resolving]
  - Polymerase chain reaction [None]
  - Hot flush [Recovering/Resolving]
  - Fatigue [Recovered/Resolved]

NARRATIVE: CASE EVENT DATE: 2017
